FAERS Safety Report 5910075-6 (Version None)
Quarter: 2008Q4

REPORT INFORMATION
  Report Type: 
  Country: None (occurrence: None)
  Receive Date: 20081007
  Receipt Date: 20070831
  Transmission Date: 20090506
  Serious: No
  Sender: FDA-Public Use
  Company Number: US-ASTRAZENECA-2007UW20780

PATIENT
  Age: 961 Month
  Sex: Female
  Weight: 179 kg

DRUGS (2)
  1. ARIMIDEX [Suspect]
     Indication: BREAST CANCER
     Route: 048
     Dates: start: 20070620
  2. ZOMETA [Concomitant]

REACTIONS (1)
  - RED BLOOD CELL COUNT DECREASED [None]
